FAERS Safety Report 24095253 (Version 1)
Quarter: 2024Q3

REPORT INFORMATION
  Report Type: Spontaneous
  Country: US (occurrence: US)
  Receive Date: 20240716
  Receipt Date: 20240716
  Transmission Date: 20241016
  Serious: Yes (Other)
  Sender: ORGANON
  Company Number: US-ORGANON-O2407USA001102

PATIENT
  Sex: Female
  Weight: 148 kg

DRUGS (4)
  1. COZAAR [Suspect]
     Active Substance: LOSARTAN POTASSIUM
     Dosage: UNK
     Route: 048
  2. KENALOG [Concomitant]
     Active Substance: TRIAMCINOLONE ACETONIDE
     Dosage: EVERY 2 MONTHS
  3. VITAMIN D2 [Concomitant]
     Active Substance: ERGOCALCIFEROL
     Dosage: UNK
  4. CELESTONE SOLUSPAN [Concomitant]
     Active Substance: BETAMETHASONE ACETATE\BETAMETHASONE SODIUM PHOSPHATE
     Indication: Rhinitis allergic
     Dosage: ABOUT 8 YEARS AGO, INJECTION EVERY 3 TO 4 MONTHS,INJECTION IN HIP
     Route: 030
     Dates: start: 2016

REACTIONS (4)
  - Anaphylactic shock [Unknown]
  - Swollen tongue [Unknown]
  - Rash [Unknown]
  - Urticaria [Unknown]
